FAERS Safety Report 8161854-9 (Version None)
Quarter: 2012Q1

REPORT INFORMATION
  Report Type: 
  Country: None (occurrence: None)
  Receive Date: 20120224
  Receipt Date: 20110726
  Transmission Date: 20120608
  Serious: No
  Sender: FDA-Public Use
  Company Number: US-BRISTOL-MYERS SQUIBB COMPANY-15929185

PATIENT
  Sex: Male

DRUGS (2)
  1. LANTUS [Suspect]
     Dosage: 1DF=100 IU/ML PARENTRAL INJ, SOLN
     Route: 058
  2. METFORMIN HCL [Suspect]

REACTIONS (1)
  - BLOOD GLUCOSE INCREASED [None]
